FAERS Safety Report 19408598 (Version 2)
Quarter: 2021Q2

REPORT INFORMATION
  Report Type: Spontaneous
  Country: US (occurrence: US)
  Receive Date: 20210612
  Receipt Date: 20210622
  Transmission Date: 20210717
  Serious: No
  Sender: FDA-Public Use
  Company Number: US-TEVA-2021-US-1919510

PATIENT
  Sex: Female

DRUGS (1)
  1. PENICILLIN V POTASSIUM TEVA [Suspect]
     Active Substance: PENICILLIN V POTASSIUM
     Indication: ENDODONTIC PROCEDURE
     Route: 065
     Dates: start: 20210525

REACTIONS (3)
  - Tinnitus [Recovered/Resolved]
  - Burning sensation [Not Recovered/Not Resolved]
  - Lip swelling [Unknown]

NARRATIVE: CASE EVENT DATE: 20210527
